FAERS Safety Report 6329049-9 (Version None)
Quarter: 2009Q3

REPORT INFORMATION
  Report Type: 
  Country: None (occurrence: None)
  Receive Date: 20090826
  Receipt Date: 20090817
  Transmission Date: 20100115
  Serious: Yes (Other)
  Sender: FDA-Public Use
  Company Number: PHHY2009JP35185

PATIENT
  Age: 61 Year
  Sex: Male

DRUGS (7)
  1. VOLTAREN [Suspect]
     Route: 054
  2. DIOVAN [Concomitant]
     Route: 048
  3. FLUITRAN [Concomitant]
  4. LANDEL [Concomitant]
  5. DEPAS [Concomitant]
  6. TAKEPRON [Concomitant]
  7. GASTROM [Concomitant]
     Route: 048

REACTIONS (4)
  - HAEMORRHAGE SUBCUTANEOUS [None]
  - HYPOAESTHESIA [None]
  - PARALYSIS [None]
  - RASH MACULAR [None]
